FAERS Safety Report 25889358 (Version 3)
Quarter: 2025Q4

REPORT INFORMATION
  Report Type: Spontaneous
  Country: EU (occurrence: EU)
  Receive Date: 20251007
  Receipt Date: 20251103
  Transmission Date: 20260118
  Serious: Yes (Hospitalization, Other)
  Sender: DR REDDYS
  Company Number: None

PATIENT
  Age: 83 Year
  Sex: Male
  Weight: 72 kg

DRUGS (2)
  1. DAPTOMYCIN [Suspect]
     Active Substance: DAPTOMYCIN
     Indication: Pyrexia
     Dosage: 500 MG DAILY IN 100 CC OF SALINE SOLUTION.
     Route: 042
     Dates: start: 20250906, end: 20250909
  2. CEFTRIAXONE [Concomitant]
     Active Substance: CEFTRIAXONE
     Indication: Urinary tract infection
     Dosage: 2G/DAY
     Route: 042
     Dates: start: 20250906, end: 20250910

REACTIONS (3)
  - Erythema multiforme [Recovering/Resolving]
  - Stomatitis [Recovering/Resolving]
  - Dermatitis bullous [Recovering/Resolving]

NARRATIVE: CASE EVENT DATE: 20250910
